FAERS Safety Report 16242620 (Version 1)
Quarter: 2019Q2

REPORT INFORMATION
  Report Type: Spontaneous
  Country: US (occurrence: US)
  Receive Date: 20190426
  Receipt Date: 20190426
  Transmission Date: 20190711
  Serious: No
  Sender: FDA-Public Use
  Company Number: US-BAYER-2019-084884

PATIENT
  Sex: Male

DRUGS (3)
  1. CLARITIN [Suspect]
     Active Substance: LORATADINE
  2. CETIRIZINE HYDROCHLORIDE. [Suspect]
     Active Substance: CETIRIZINE HYDROCHLORIDE
     Dosage: UNK
  3. NAPHAZOLINE HYDROCHLORIDE. [Suspect]
     Active Substance: NAPHAZOLINE HYDROCHLORIDE
     Dosage: UNK

REACTIONS (1)
  - Drug ineffective [Unknown]
